FAERS Safety Report 21587714 (Version 1)
Quarter: 2022Q4

REPORT INFORMATION
  Report Type: Report from Study
  Country: US (occurrence: US)
  Receive Date: 20221114
  Receipt Date: 20221114
  Transmission Date: 20230112
  Serious: No
  Sender: FDA-Public Use
  Company Number: US-ABBVIE-4162243

PATIENT
  Sex: Male

DRUGS (4)
  1. SKYRIZI [Suspect]
     Active Substance: RISANKIZUMAB-RZAA
     Indication: Product used for unknown indication
     Route: 058
  2. Pfizer/BioNTech Covid-19 Vaccination [Concomitant]
     Indication: COVID-19 immunisation
     Dosage: 1ST DOSE - ONCE
     Route: 030
  3. Pfizer/BioNTech Covid-19 Vaccination [Concomitant]
     Indication: COVID-19 immunisation
     Dosage: 2ND DOSE -  ONCE
     Route: 030
  4. Pfizer/BioNTech Covid-19 Vaccination [Concomitant]
     Indication: COVID-19 immunisation
     Dosage: 3RD BOOSTER DOSE -  ONCE
     Route: 030

REACTIONS (1)
  - SARS-CoV-2 test positive [Recovered/Resolved]
